FAERS Safety Report 4366405-2 (Version None)
Quarter: 2004Q2

REPORT INFORMATION
  Report Type: 
  Country: None (occurrence: None)
  Receive Date: 20040524
  Receipt Date: 20040510
  Transmission Date: 20050107
  Serious: Yes (Hospitalization)
  Sender: FDA-Public Use
  Company Number: AU-JNJFOC-20040502848

PATIENT
  Age: 27 Year
  Sex: Female

DRUGS (3)
  1. TRAMAL (TRAMADOL HYDROCHLORIDE) UNSPECIFIED [Suspect]
     Indication: MIGRAINE
     Dosage: 50 MG ORAL
     Route: 048
  2. IMIGRAN (SUMATRIPTAN SUCCINATE) [Suspect]
  3. DEPO-PROVERA [Concomitant]

REACTIONS (5)
  - CONFUSIONAL STATE [None]
  - HYPERHIDROSIS [None]
  - NAUSEA [None]
  - SEROTONIN SYNDROME [None]
  - SYNCOPE [None]
